FAERS Safety Report 12818514 (Version 2)
Quarter: 2016Q4

REPORT INFORMATION
  Report Type: Spontaneous
  Country: US (occurrence: US)
  Receive Date: 20161006
  Receipt Date: 20161228
  Transmission Date: 20170207
  Serious: Yes (Hospitalization, Disabling)
  Sender: FDA-Public Use
  Company Number: US-ENDO PHARMACEUTICALS INC.-2016-006052

PATIENT
  Age: 51 Year
  Sex: Male
  Weight: 163.44 kg

DRUGS (2)
  1. TESTIM [Suspect]
     Active Substance: TESTOSTERONE
     Indication: ANDROGEN REPLACEMENT THERAPY
     Dosage: SOMTIMES A HALF PACKET, OTHER TIMES A FULL PACKET
     Route: 062
     Dates: start: 200411, end: 200807
  2. ANDROGEL [Suspect]
     Active Substance: TESTOSTERONE
     Indication: ANDROGEN REPLACEMENT THERAPY
     Route: 065
     Dates: start: 200808, end: 200902

REACTIONS (5)
  - Deep vein thrombosis [Not Recovered/Not Resolved]
  - Heart rate irregular [Unknown]
  - Pulmonary embolism [Not Recovered/Not Resolved]
  - Pulmonary infarction [Not Recovered/Not Resolved]
  - Deep vein thrombosis [Not Recovered/Not Resolved]

NARRATIVE: CASE EVENT DATE: 20050409
